FAERS Safety Report 5040656-6 (Version None)
Quarter: 2006Q2

REPORT INFORMATION
  Report Type: 
  Country: None (occurrence: None)
  Receive Date: 20060629
  Receipt Date: 20060629
  Transmission Date: 20061013
  Serious: Yes (Hospitalization)
  Sender: FDA-Public Use
  Company Number: None

PATIENT
  Age: 43 Year
  Sex: Male
  Weight: 70 kg

DRUGS (2)
  1. LISINOPRIL [Suspect]
     Indication: HYPERTENSION
     Dosage: 40 MG DAILY [YEARS]
  2. CONTRAST DYE [Suspect]
     Indication: ARTERIOVENOUS GRAFT

REACTIONS (5)
  - CONTRAST MEDIA REACTION [None]
  - EYE PAIN [None]
  - EYE SWELLING [None]
  - POST PROCEDURAL COMPLICATION [None]
  - SWELLING FACE [None]
